FAERS Safety Report 14512737 (Version 3)
Quarter: 2018Q1

REPORT INFORMATION
  Report Type: Report from Study
  Country: PL (occurrence: PL)
  Receive Date: 20180209
  Receipt Date: 20180329
  Transmission Date: 20180509
  Serious: Yes (Hospitalization, Other)
  Sender: FDA-Public Use
  Company Number: PL-EXELIXIS-XL18418012292

PATIENT
  Age: 23 Year
  Sex: Female
  Weight: 50 kg

DRUGS (13)
  1. MAGNE B6 [Concomitant]
     Active Substance: MAGNESIUM\PYRIDOXINE
  2. AMITRIPTYLINUM [Concomitant]
  3. BLINDED XL184 [Suspect]
     Active Substance: CABOZANTINIB
     Indication: MEDULLARY THYROID CANCER
     Dosage: UNK
     Route: 048
     Dates: start: 20170810
  4. LETROX [Concomitant]
     Active Substance: LEVOTHYROXINE SODIUM
  5. CORTINEFF [Concomitant]
     Active Substance: FLUDROCORTISONE
  6. BLINDED XL184 [Suspect]
     Active Substance: CABOZANTINIB
     Dosage: DOSE REDUCTION
     Route: 048
     Dates: start: 20171004, end: 20180131
  7. ALFADIOL [Concomitant]
     Active Substance: ALFACALCIDOL
  8. BLINDED XL184 [Suspect]
     Active Substance: CABOZANTINIB
     Dosage: DOSE REDUCTION
     Route: 048
     Dates: start: 20180305, end: 20180322
  9. CALPEROS [Concomitant]
     Active Substance: CALCIUM CARBONATE
  10. BLINDED XL184 [Suspect]
     Active Substance: CABOZANTINIB
     Dosage: DOSE REDUCTION
     Route: 048
     Dates: start: 20180305, end: 20180322
  11. BLINDED XL184 [Suspect]
     Active Substance: CABOZANTINIB
     Indication: MEDULLARY THYROID CANCER
     Dosage: UNK
     Route: 048
     Dates: start: 20170810
  12. BLINDED XL184 [Suspect]
     Active Substance: CABOZANTINIB
     Dosage: DOSE REDUCTION
     Route: 048
     Dates: start: 20171004, end: 20180131
  13. HYDROCORTISON [Concomitant]
     Active Substance: HYDROCORTISONE

REACTIONS (2)
  - Pneumothorax spontaneous [Recovered/Resolved]
  - Pneumothorax spontaneous [Unknown]

NARRATIVE: CASE EVENT DATE: 20180201
